FAERS Safety Report 5671158-1 (Version None)
Quarter: 2008Q1

REPORT INFORMATION
  Report Type: 
  Country: None (occurrence: None)
  Receive Date: 20080318
  Receipt Date: 20080306
  Transmission Date: 20080703
  Serious: Yes (Other)
  Sender: FDA-Public Use
  Company Number: US-ELI_LILLY_AND_COMPANY-US200803002122

PATIENT
  Sex: Female

DRUGS (3)
  1. CYMBALTA [Suspect]
     Indication: DIABETIC NEUROPATHY
  2. LYRICA [Concomitant]
     Indication: DIABETIC NEUROPATHY
  3. NEURONTIN [Concomitant]
     Indication: DIABETIC NEUROPATHY
     Dosage: 1 D/F, UNK

REACTIONS (2)
  - HEADACHE [None]
  - SURGERY [None]
